FAERS Safety Report 9993610 (Version 1)
Quarter: 2014Q1

REPORT INFORMATION
  Report Type: Spontaneous
  Country: US (occurrence: US)
  Receive Date: 20140310
  Receipt Date: 20140310
  Transmission Date: 20141002
  Serious: Yes (Other)
  Sender: FDA-Public Use
  Company Number: US-B.I. PHARMACEUTICALS,INC./RIDGEFIELD-2014-BI-09666BP

PATIENT
  Sex: 0

DRUGS (2)
  1. GILOTRIF [Suspect]
     Indication: NON-SMALL CELL LUNG CANCER
     Route: 065
     Dates: end: 20140228
  2. TARCEVA THERAPY [Concomitant]
     Route: 065

REACTIONS (2)
  - Non-small cell lung cancer [Not Recovered/Not Resolved]
  - Off label use [Recovered/Resolved]
